FAERS Safety Report 15426217 (Version 1)
Quarter: 2018Q4

REPORT INFORMATION
  Report Type: Spontaneous
  Country: US (occurrence: US)
  Receive Date: 20180925
  Receipt Date: 20180925
  Transmission Date: 20190204
  Serious: Yes (Hospitalization, Other)
  Sender: FDA-Public Use
  Company Number: US-INDIVIOR LIMITED-INDV-114219-2018

PATIENT
  Sex: Male

DRUGS (1)
  1. SUBOXONE [Suspect]
     Active Substance: BUPRENORPHINE HYDROCHLORIDE\NALOXONE HYDROCHLORIDE
     Indication: DRUG DEPENDENCE
     Dosage: 12MG, TWO TIMES PER DAY
     Route: 065

REACTIONS (7)
  - Tibia fracture [Unknown]
  - Tendon injury [Unknown]
  - Gun shot wound [Unknown]
  - Therapeutic product ineffective [Unknown]
  - Procedural pain [Unknown]
  - Inappropriate schedule of product administration [Recovered/Resolved]
  - Drug tolerance increased [Unknown]
